FAERS Safety Report 16715256 (Version 1)
Quarter: 2019Q3

REPORT INFORMATION
  Report Type: Spontaneous
  Country: US (occurrence: US)
  Receive Date: 20190702
  Receipt Date: 20190702
  Transmission Date: 20191005
  Serious: Yes (Hospitalization)
  Sender: FDA-Public Use
  Company Number: None

PATIENT
  Age: 21 Year
  Sex: Female

DRUGS (2)
  1. TOBRAMYCIN 300MG/5ML NEB SOLUTION [Suspect]
     Active Substance: TOBRAMYCIN
     Indication: CYSTIC FIBROSIS
     Dosage: ?          OTHER DOSE:1 VIAL; EVERY  12 HOURS INHALE?
     Route: 055
     Dates: start: 20171206
  2. PULMOZYME [Concomitant]
     Active Substance: DORNASE ALFA

REACTIONS (3)
  - Cystic fibrosis [None]
  - Condition aggravated [None]
  - Lung neoplasm [None]

NARRATIVE: CASE EVENT DATE: 2019
